FAERS Safety Report 20233498 (Version 3)
Quarter: 2022Q1

REPORT INFORMATION
  Report Type: Report from Study
  Country: JP (occurrence: JP)
  Receive Date: 20211227
  Receipt Date: 20220106
  Transmission Date: 20220424
  Serious: Yes (Hospitalization)
  Sender: FDA-Public Use
  Company Number: JP-DSJP-DSJ-2021-142927

PATIENT
  Age: 68 Year
  Sex: Female
  Weight: 48.8 kg

DRUGS (15)
  1. TRASTUZUMAB DERUXTECAN [Suspect]
     Active Substance: TRASTUZUMAB DERUXTECAN
     Indication: HER2 positive breast cancer
     Dosage: 5.4 MG/KG, ONCE EVERY 3 WK
     Route: 041
     Dates: start: 20190108, end: 20191210
  2. TRASTUZUMAB DERUXTECAN [Suspect]
     Active Substance: TRASTUZUMAB DERUXTECAN
     Dosage: 5.4 MG/KG, ONCE EVERY 3 WK
     Route: 041
     Dates: start: 20200107, end: 20201208
  3. TRASTUZUMAB DERUXTECAN [Suspect]
     Active Substance: TRASTUZUMAB DERUXTECAN
     Dosage: 5.4 MG/KG, ONCE EVERY 3 WK
     Route: 041
     Dates: start: 20210105, end: 20211228
  4. METHYLCOBALAMIN [Concomitant]
     Active Substance: METHYLCOBALAMIN
     Indication: Peripheral sensory neuropathy
     Dosage: 500 UG, TID
     Route: 048
     Dates: start: 20170829, end: 20190819
  5. HERBALS [Concomitant]
     Active Substance: HERBALS
     Indication: Peripheral sensory neuropathy
     Dosage: 2.5 G, TID
     Route: 048
     Dates: start: 20170829, end: 20190831
  6. MAGNESIUM OXIDE [Concomitant]
     Active Substance: MAGNESIUM OXIDE
     Indication: Constipation
     Dosage: 330 MG, AS NEEDED
     Route: 048
     Dates: start: 20180712
  7. HYALURONATE SODIUM [Concomitant]
     Active Substance: HYALURONATE SODIUM
     Indication: Dry eye
     Dosage: 1 APPLICATION, AS NEEDED
     Route: 061
     Dates: start: 201811
  8. DIQUAFOSOL TETRASODIUM [Concomitant]
     Active Substance: DIQUAFOSOL TETRASODIUM
     Indication: Dry eye
     Dosage: 1 APPLICATION, AS NEEDED
     Route: 061
     Dates: start: 201811
  9. TARIVID OTIC [Concomitant]
     Indication: Otitis media
     Dosage: 1 DROP, BID
     Route: 061
     Dates: start: 20181212, end: 20211220
  10. GLYCOSAMINOGLYCANS [Concomitant]
     Active Substance: GLYCOSAMINOGLYCANS
     Indication: Dry skin
     Dosage: 1 APPLICATION, AS NEEDED
     Route: 061
     Dates: start: 20190122, end: 20190218
  11. GLYCOSAMINOGLYCANS [Concomitant]
     Active Substance: GLYCOSAMINOGLYCANS
     Indication: Dry skin
     Dosage: 1 APPLICATION, AS NEEDED
     Route: 061
     Dates: start: 20190221
  12. PIRENOXINE [Concomitant]
     Active Substance: PIRENOXINE
     Indication: Cataract
     Dosage: 1 DROP, TID
     Route: 031
     Dates: start: 20191114, end: 20211220
  13. OMNIPAQUE [Concomitant]
     Active Substance: IOHEXOL
     Indication: Computerised tomogram
     Dosage: 100 ML, EVERY 6 WEEKS
     Route: 042
     Dates: start: 20190805
  14. GADOBUTROL [Concomitant]
     Active Substance: GADOBUTROL
     Indication: Magnetic resonance imaging
     Dosage: 5 ML, EVERY 6 WEEKS
     Route: 042
     Dates: start: 20190219
  15. BETAMETHASONE SODIUM PHOSPHATE [Concomitant]
     Active Substance: BETAMETHASONE SODIUM PHOSPHATE
     Indication: Otitis media
     Dosage: 1 APPLICATION, TID
     Route: 061
     Dates: start: 20200519, end: 20211220

REACTIONS (2)
  - Hyperbilirubinaemia [Recovered/Resolved]
  - Asthenia [Recovered/Resolved]

NARRATIVE: CASE EVENT DATE: 20211220
